FAERS Safety Report 9889505 (Version 2)
Quarter: 2014Q1

REPORT INFORMATION
  Report Type: Spontaneous
  Country: US (occurrence: US)
  Receive Date: 20140211
  Receipt Date: 20140305
  Transmission Date: 20141002
  Serious: Yes (Other)
  Sender: FDA-Public Use
  Company Number: US-BAXTER-2014BAX006094

PATIENT
  Sex: Male

DRUGS (5)
  1. DIANEAL LOW CALCIUM [Suspect]
     Indication: PERITONEAL DIALYSIS
     Route: 033
     Dates: start: 2012
  2. DIANEAL LOW CALCIUM [Suspect]
     Route: 033
     Dates: start: 2012
  3. DIANEAL LOW CALCIUM (ULTRABAG) [Suspect]
     Indication: PERITONEAL DIALYSIS
     Route: 033
     Dates: start: 201105
  4. DIANEAL LOW CALCIUM (ULTRABAG) [Suspect]
     Route: 033
     Dates: start: 2012
  5. FORTAZ [Suspect]
     Indication: PERITONEAL CLOUDY EFFLUENT
     Dates: start: 20140201

REACTIONS (4)
  - Infection [Recovering/Resolving]
  - Peritoneal cloudy effluent [Recovering/Resolving]
  - Peritoneal dialysis complication [Recovered/Resolved]
  - Blood glucose increased [Recovered/Resolved]
